FAERS Safety Report 12789229 (Version 2)
Quarter: 2016Q4

REPORT INFORMATION
  Report Type: Spontaneous
  Country: JP (occurrence: JP)
  Receive Date: 20160928
  Receipt Date: 20161214
  Transmission Date: 20170207
  Serious: Yes (Hospitalization, Other)
  Sender: FDA-Public Use
  Company Number: JP-ROCHE-1835936

PATIENT
  Age: 74 Year
  Sex: Female

DRUGS (1)
  1. BONVIVA [Suspect]
     Active Substance: IBANDRONATE SODIUM
     Indication: PRODUCT USED FOR UNKNOWN INDICATION
     Dosage: DOSAGE IS UNCERTAIN.
     Route: 042
     Dates: start: 20160907

REACTIONS (5)
  - Liver function test increased [Unknown]
  - Blood pressure decreased [Unknown]
  - C-reactive protein increased [Unknown]
  - Seizure [Unknown]
  - Cold sweat [Unknown]

NARRATIVE: CASE EVENT DATE: 20160918
